FAERS Safety Report 5080327-3 (Version None)
Quarter: 2006Q3

REPORT INFORMATION
  Report Type: 
  Country: None (occurrence: None)
  Receive Date: 20060815
  Receipt Date: 20060801
  Transmission Date: 20061208
  Serious: Yes (Other)
  Sender: FDA-Public Use
  Company Number: US-JNJFOC-20060801062

PATIENT
  Age: 56 Year
  Sex: Female
  Weight: 86.18 kg

DRUGS (7)
  1. DURAGESIC-100 [Suspect]
     Indication: PAIN
     Route: 062
  2. KLONOPIN [Concomitant]
     Indication: CONVULSION
     Route: 048
  3. ACTIQ (SUGAR-FREE) [Concomitant]
     Indication: BREAKTHROUGH PAIN
  4. LYRICA [Concomitant]
     Indication: NEURALGIA
     Dosage: 200 MG, 1-3 TIMES/DAY
     Route: 048
  5. BACLOFEN [Concomitant]
     Indication: MUSCLE RELAXANT THERAPY
     Route: 048
  6. FOSAMAX [Concomitant]
     Indication: INTERVERTEBRAL DISC DEGENERATION
     Route: 048
  7. EFFEXOR [Concomitant]
     Indication: DEPRESSION
     Route: 048

REACTIONS (4)
  - ARTHRITIS [None]
  - INTERSTITIAL LUNG DISEASE [None]
  - SOMNOLENCE [None]
  - THROMBOSIS [None]
